FAERS Safety Report 11674027 (Version 1)
Quarter: 2015Q4

REPORT INFORMATION
  Report Type: Spontaneous
  Country: FR (occurrence: FR)
  Receive Date: 20151028
  Receipt Date: 20151028
  Transmission Date: 20160304
  Serious: Yes (Death)
  Sender: FDA-Public Use
  Company Number: FR-ROCHE-1651656

PATIENT
  Age: 88 Year
  Sex: Male

DRUGS (4)
  1. ROCEPHINE [Suspect]
     Active Substance: CEFTRIAXONE SODIUM
     Indication: PROSTATITIS
     Route: 065
     Dates: start: 20150518, end: 20150526
  2. ROCEPHINE [Suspect]
     Active Substance: CEFTRIAXONE SODIUM
     Route: 065
  3. CIPROFLOXACINE [Suspect]
     Active Substance: CIPROFLOXACIN
     Indication: PROSTATITIS
     Route: 048
     Dates: start: 20150526, end: 20150601
  4. GENTAMYCINE [Concomitant]
     Active Substance: GENTAMICIN

REACTIONS (2)
  - Leukopenia [Fatal]
  - Neutropenia [Fatal]

NARRATIVE: CASE EVENT DATE: 20150601
